FAERS Safety Report 25068032 (Version 1)
Quarter: 2025Q1

REPORT INFORMATION
  Report Type: Spontaneous
  Country: US (occurrence: None)
  Receive Date: 20250311
  Receipt Date: 20250311
  Transmission Date: 20250409
  Serious: Yes (unspecified)
  Sender: FDA-CTU
  Company Number: None

PATIENT
  Age: 29 Year
  Sex: Female
  Weight: 63 kg

DRUGS (2)
  1. MONISTAT [Suspect]
     Active Substance: MICONAZOLE NITRATE
     Indication: Fungal infection
     Dates: start: 20250304, end: 20250305
  2. Euro - probiotic [Concomitant]

REACTIONS (8)
  - Chemical burn [None]
  - Vulvovaginal injury [None]
  - Genital ulceration [None]
  - Genital injury [None]
  - Dysuria [None]
  - Vulvovaginal swelling [None]
  - Gait disturbance [None]
  - Genital pain [None]

NARRATIVE: CASE EVENT DATE: 20250304
